FAERS Safety Report 13530897 (Version 2)
Quarter: 2017Q2

REPORT INFORMATION
  Report Type: Spontaneous
  Country: US (occurrence: US)
  Receive Date: 20170510
  Receipt Date: 20170606
  Transmission Date: 20170830
  Serious: Yes (Death, Life-Threatening, Hospitalization, Other)
  Sender: FDA-Public Use
  Company Number: US-MACLEODS PHARMACEUTICALS US LTD-MAC2017004972

PATIENT

DRUGS (24)
  1. EXELON [Suspect]
     Active Substance: RIVASTIGMINE TARTRATE
     Indication: CONFUSIONAL STATE
     Dosage: 4.6 MG, QD
     Route: 062
     Dates: start: 20170322, end: 20170323
  2. AMBIEN [Concomitant]
     Active Substance: ZOLPIDEM TARTRATE
     Indication: PRODUCT USED FOR UNKNOWN INDICATION
     Dosage: 5 MG, NIGHTLY PRN
     Route: 048
     Dates: start: 20170322, end: 20170323
  3. COLACE [Concomitant]
     Active Substance: DOCUSATE SODIUM
     Indication: PRODUCT USED FOR UNKNOWN INDICATION
     Dosage: 100 MG, BID
     Route: 048
  4. LANTUS SOLOSTAR [Concomitant]
     Active Substance: INSULIN GLARGINE
     Indication: PRODUCT USED FOR UNKNOWN INDICATION
     Dosage: 25 UNITS, NIGHTLY (100 UNIT/ML (3 ML))
     Route: 058
  5. ZOFRAN [Concomitant]
     Active Substance: ONDANSETRON HYDROCHLORIDE
     Indication: PRODUCT USED FOR UNKNOWN INDICATION
     Dosage: 4 MG, EVERY 6 HRS PRN
     Route: 042
     Dates: start: 20170322, end: 20170323
  6. ZYMAXID [Concomitant]
     Active Substance: GATIFLOXACIN
     Indication: PRODUCT USED FOR UNKNOWN INDICATION
     Dosage: 0.5 %, UNK
  7. RIVASTIGMINE 3 MG CAPSULE [Suspect]
     Active Substance: RIVASTIGMINE
     Dosage: 3 DF, QD (3 CAPSULE OF 3MG, EVERY NIGHT)
     Route: 048
  8. LEVEMIR [Concomitant]
     Active Substance: INSULIN DETEMIR
     Indication: PRODUCT USED FOR UNKNOWN INDICATION
     Dosage: 25 UNITS, QD AT NIGHT
     Route: 058
     Dates: start: 20170322, end: 20170323
  9. LOPRESSOR TABLET [Concomitant]
     Indication: ATRIAL FIBRILLATION
     Dosage: 50 MG, BID
     Route: 048
     Dates: start: 20170322, end: 20170323
  10. SENOKOT [Concomitant]
     Active Substance: SENNOSIDES
     Indication: PRODUCT USED FOR UNKNOWN INDICATION
     Dosage: 2 DF, QD (8.6 MG TABLET, 2 TABLET NIGHTLY)
     Route: 048
  11. RIVASTIGMINE 3 MG CAPSULE [Suspect]
     Active Substance: RIVASTIGMINE
     Indication: CONFUSIONAL STATE
     Dosage: 3 MG, QD
     Route: 048
  12. APRESOLINE HYDROCHLORIDE [Concomitant]
     Active Substance: HYDRALAZINE HYDROCHLORIDE
     Indication: PRODUCT USED FOR UNKNOWN INDICATION
     Dosage: 10 MG, QID EVERY 6 HRS PRN
     Route: 042
     Dates: start: 20170322, end: 20170323
  13. NORMODYNE  TRANDATE [Concomitant]
     Indication: PRODUCT USED FOR UNKNOWN INDICATION
     Dosage: 10 MG, QID
     Route: 042
     Dates: start: 20170322, end: 20170323
  14. ZETIA [Concomitant]
     Active Substance: EZETIMIBE
     Indication: PRODUCT USED FOR UNKNOWN INDICATION
     Dosage: 10 MG, QD AT NIGHT
     Route: 048
     Dates: start: 20170322, end: 20170323
  15. GLUPHAGE [Concomitant]
     Indication: PRODUCT USED FOR UNKNOWN INDICATION
     Dosage: 500 MG, TID
     Route: 048
  16. TRICOR [Concomitant]
     Active Substance: FENOFIBRATE
     Indication: PRODUCT USED FOR UNKNOWN INDICATION
     Dosage: 54 MG, QD WITH DINNER
     Route: 048
     Dates: start: 20170322, end: 20170323
  17. ISOVUE 370 [Concomitant]
     Active Substance: IOPAMIDOL
     Indication: PRODUCT USED FOR UNKNOWN INDICATION
     Dosage: 100 ML, AS NEEDED IMG
     Route: 042
     Dates: start: 20170322, end: 20170323
  18. LOVENOX [Concomitant]
     Active Substance: ENOXAPARIN SODIUM
     Indication: PRODUCT USED FOR UNKNOWN INDICATION
     Dosage: 70 MG, BID EVERY 12 HRS
     Route: 058
     Dates: start: 20170322, end: 20170323
  19. NORMODYNE  TRANDATE [Concomitant]
     Dosage: 20 MG, QD
     Route: 042
     Dates: start: 20170322, end: 20170323
  20. SENOKOT [Concomitant]
     Active Substance: SENNOSIDES
     Dosage: 17.2 MG, 2 TABLET, AT NIGHT
     Route: 048
  21. PRINIVIL, ZESTRIL [Concomitant]
     Indication: PRODUCT USED FOR UNKNOWN INDICATION
     Dosage: 20 MG, BID
     Route: 048
     Dates: start: 20170322, end: 20170323
  22. XARELTO [Concomitant]
     Active Substance: RIVAROXABAN
     Indication: ATRIAL FIBRILLATION
     Dosage: 20 MG, QD WITH DINNER
     Route: 048
  23. ALPHAGAN P [Concomitant]
     Active Substance: BRIMONIDINE TARTRATE
     Indication: PRODUCT USED FOR UNKNOWN INDICATION
     Dosage: 1 DROP, TID (0.15 % OPHTHALMIC SOLUTION)
  24. VITAMIN C [Concomitant]
     Active Substance: ASCORBIC ACID
     Indication: PRODUCT USED FOR UNKNOWN INDICATION
     Dosage: 500 MG, BID (CHEW)
     Route: 048

REACTIONS (23)
  - Coma [Fatal]
  - Hypoxia [Fatal]
  - Aphasia [Fatal]
  - Dyspnoea [Fatal]
  - Acute respiratory failure [Fatal]
  - Blood pressure increased [Fatal]
  - Somnolence [Fatal]
  - Mental status changes [Fatal]
  - Dysphagia [Fatal]
  - Tachypnoea [Fatal]
  - Dysarthria [Fatal]
  - Aspiration [Fatal]
  - Respiratory distress [Fatal]
  - Feeding disorder [Fatal]
  - Snoring [Fatal]
  - Cerebrovascular accident [Fatal]
  - Encephalopathy [Fatal]
  - Depressed level of consciousness [Fatal]
  - Hypertensive crisis [Fatal]
  - Condition aggravated [Fatal]
  - Pulmonary oedema [Fatal]
  - Unresponsive to stimuli [Fatal]
  - Hemiparesis [Fatal]
